FAERS Safety Report 8230703-2 (Version None)
Quarter: 2012Q1

REPORT INFORMATION
  Report Type: 
  Country: None (occurrence: None)
  Receive Date: 20120322
  Receipt Date: 20120322
  Transmission Date: 20120608
  Serious: Yes (Hospitalization)
  Sender: FDA-Public Use
  Company Number: None

PATIENT
  Age: 58 Year
  Sex: Male
  Weight: 100.7 kg

DRUGS (9)
  1. ATIVAN [Concomitant]
  2. ZOFRAN [Concomitant]
  3. ALLOPURINOL [Concomitant]
  4. OFATUMUMAB [Suspect]
     Indication: CHRONIC LYMPHOCYTIC LEUKAEMIA
     Dosage: 1000MG, WEEKLY, IV
     Route: 042
     Dates: start: 20111213
  5. OFATUMUMAB [Suspect]
     Indication: CHRONIC LYMPHOCYTIC LEUKAEMIA
     Dosage: 1000MG, WEEKLY, IV
     Route: 042
     Dates: end: 20120320
  6. ACYCLOVIR [Concomitant]
  7. OMEPRAZOLE [Concomitant]
  8. VORICONAZOLE [Concomitant]
  9. BACTRIM [Concomitant]

REACTIONS (4)
  - HEPATOSPLENOMEGALY [None]
  - PULMONARY EMBOLISM [None]
  - PULMONARY INFARCTION [None]
  - LUNG NEOPLASM [None]
